FAERS Safety Report 6910495-7 (Version None)
Quarter: 2010Q3

REPORT INFORMATION
  Report Type: 
  Country: None (occurrence: None)
  Receive Date: 20100806
  Receipt Date: 20100726
  Transmission Date: 20110219
  Serious: Yes (Other)
  Sender: FDA-Public Use
  Company Number: PHHY2010JP42382

PATIENT
  Age: 86 Year
  Sex: Female

DRUGS (5)
  1. ZOMETA [Suspect]
     Indication: METASTASES TO BONE
     Route: 041
  2. PACLITAXEL [Suspect]
     Indication: BREAST CANCER
     Dosage: UNK
  3. TRASTUZUMAB [Concomitant]
     Indication: METASTASES TO LYMPH NODES
     Dosage: UNK
     Dates: start: 20031201
  4. TRASTUZUMAB [Concomitant]
     Dosage: UNK
     Dates: start: 20051201
  5. TAMOXIFEN CITRATE [Concomitant]
     Indication: BREAST CANCER
     Route: 048

REACTIONS (1)
  - NEUROPATHY PERIPHERAL [None]
